FAERS Safety Report 4586995-4 (Version None)
Quarter: 2005Q1

REPORT INFORMATION
  Report Type: 
  Country: None (occurrence: None)
  Receive Date: 20050218
  Receipt Date: 20050127
  Transmission Date: 20050727
  Serious: Yes (Death, Other)
  Sender: FDA-Public Use
  Company Number: PHEH2005US01350

PATIENT
  Sex: Female

DRUGS (1)
  1. APRESOLINE [Suspect]
     Dates: start: 19890101

REACTIONS (3)
  - DEATH [None]
  - HYPOTENSION [None]
  - MYOCARDIAL INFARCTION [None]
